FAERS Safety Report 8435097-5 (Version None)
Quarter: 2012Q2

REPORT INFORMATION
  Report Type: 
  Country: None (occurrence: None)
  Receive Date: 20120614
  Receipt Date: 20120607
  Transmission Date: 20120825
  Serious: Yes (Other)
  Sender: FDA-Public Use
  Company Number: PHFR2012GB001754

PATIENT
  Sex: Male
  Weight: 70 kg

DRUGS (4)
  1. TRIHEXYPHENIDYL HCL [Concomitant]
     Indication: SALIVARY HYPERSECRETION
     Dosage: 6 MG, DAILY
     Route: 048
  2. CLOZARIL [Suspect]
     Indication: SCHIZOPHRENIA
     Route: 048
     Dates: start: 20110627
  3. CLOZARIL [Suspect]
     Dosage: 350 MG, PER DAY
  4. VALPROATE SODIUM [Concomitant]
     Indication: TREMOR
     Dosage: 1000 MG, DAILY
     Route: 048

REACTIONS (6)
  - BLOOD PRESSURE DECREASED [None]
  - BLOOD PRESSURE INCREASED [None]
  - MONOCYTE COUNT INCREASED [None]
  - DIFFERENTIAL WHITE BLOOD CELL COUNT ABNORMAL [None]
  - INFLUENZA LIKE ILLNESS [None]
  - ASTHENIA [None]
